FAERS Safety Report 22364871 (Version 1)
Quarter: 2023Q2

REPORT INFORMATION
  Report Type: Spontaneous
  Country: SG (occurrence: SG)
  Receive Date: 20230525
  Receipt Date: 20230525
  Transmission Date: 20230722
  Serious: Yes (Hospitalization, Other)
  Sender: FDA-Public Use
  Company Number: SG-TEVA-2023-SG-2889531

PATIENT
  Age: 72 Year
  Sex: Female

DRUGS (3)
  1. FULVESTRANT [Suspect]
     Active Substance: FULVESTRANT
     Indication: Breast cancer metastatic
     Route: 030
     Dates: start: 202302
  2. DENOSUMAB [Concomitant]
     Active Substance: DENOSUMAB
     Indication: Product used for unknown indication
     Route: 058
  3. IV KCL [Concomitant]
     Indication: Product used for unknown indication
     Dosage: REPLACEMENT DRIP
     Route: 041

REACTIONS (3)
  - Hypoaesthesia [Unknown]
  - Sciatica [Unknown]
  - Macular oedema [Unknown]

NARRATIVE: CASE EVENT DATE: 20230502
